FAERS Safety Report 7296798-8 (Version None)
Quarter: 2011Q1

REPORT INFORMATION
  Report Type: 
  Country: None (occurrence: None)
  Receive Date: 20110216
  Receipt Date: 20110209
  Transmission Date: 20110831
  Serious: Yes (Hospitalization)
  Sender: FDA-Public Use
  Company Number: B0699961A

PATIENT
  Sex: Female

DRUGS (2)
  1. KLACID [Concomitant]
     Indication: TONSILLITIS
     Route: 065
     Dates: start: 20110203
  2. AMOXICILLIN AND CLAVULANATE POTASSIUM [Suspect]
     Indication: TONSILLITIS
     Dosage: 1TAB PER DAY
     Route: 065
     Dates: start: 20110202, end: 20110202

REACTIONS (5)
  - HYPERSENSITIVITY [None]
  - NAUSEA [None]
  - RASH PRURITIC [None]
  - DERMATITIS [None]
  - VOMITING [None]
